FAERS Safety Report 7768117-1 (Version None)
Quarter: 2011Q3

REPORT INFORMATION
  Report Type: 
  Country: None (occurrence: None)
  Receive Date: 20110922
  Receipt Date: 20110912
  Transmission Date: 20111222
  Serious: Yes (Hospitalization)
  Sender: FDA-Public Use
  Company Number: US-BRISTOL-MYERS SQUIBB COMPANY-16055428

PATIENT
  Age: 72 Year
  Sex: Female

DRUGS (5)
  1. METFORMIN HCL [Suspect]
  2. ASPIRIN [Suspect]
  3. METOPROLOL TARTRATE [Suspect]
  4. CLOPIDOGREL BISULFATE [Suspect]
  5. INSULIN [Suspect]

REACTIONS (3)
  - GASTROINTESTINAL HAEMORRHAGE [None]
  - DUODENAL ULCER [None]
  - GASTRITIS [None]
